FAERS Safety Report 13085262 (Version 2)
Quarter: 2017Q1

REPORT INFORMATION
  Report Type: Spontaneous
  Country: US (occurrence: US)
  Receive Date: 20170104
  Receipt Date: 20170227
  Transmission Date: 20170428
  Serious: Yes (Hospitalization)
  Sender: FDA-Public Use
  Company Number: US-IMPAX LABORATORIES, INC-2016-IPXL-02375

PATIENT
  Sex: Male

DRUGS (1)
  1. RYTARY [Suspect]
     Active Substance: CARBIDOPA\LEVODOPA
     Indication: PARKINSON^S DISEASE
     Dosage: 61.25/245MG, THREE CAPSULES, 3 /DAY
     Route: 065
     Dates: start: 20161208

REACTIONS (9)
  - Activities of daily living impaired [Unknown]
  - Insomnia [Recovered/Resolved]
  - Akinesia [Unknown]
  - Eye disorder [Unknown]
  - Abnormal behaviour [Recovered/Resolved]
  - Infection [Unknown]
  - Feeding disorder [Unknown]
  - Pyrexia [Unknown]
  - Blood pressure increased [Unknown]

NARRATIVE: CASE EVENT DATE: 20161208
